FAERS Safety Report 9616232 (Version 1)
Quarter: 2013Q4

REPORT INFORMATION
  Report Type: Spontaneous
  Country: US (occurrence: US)
  Receive Date: 20131011
  Receipt Date: 20131011
  Transmission Date: 20140711
  Serious: Yes (Other)
  Sender: FDA-Public Use
  Company Number: US-PFIZER INC-2013288706

PATIENT
  Age: 29 Year
  Sex: Male

DRUGS (11)
  1. XANAX [Suspect]
     Indication: ANXIETY DISORDER
     Dosage: 1 MG, AS NEEDED
     Route: 048
  2. BACLOFEN [Concomitant]
     Dosage: 2 MG, 2X/DAY
  3. DULCOLAX [Concomitant]
     Dosage: 10 MG, 1X/DAY
     Route: 054
  4. LOVENOX [Concomitant]
     Dosage: 40 MG, UNK
  5. NEURONTIN [Concomitant]
     Dosage: 300 MG, 2X/DAY
  6. VISTARIL [Concomitant]
     Dosage: UNK
  7. ROBAXIN [Concomitant]
     Dosage: UNK
  8. PROTONIX [Concomitant]
     Dosage: UNK
  9. METAMUCIL [Concomitant]
     Dosage: UNK
  10. SENOKOT [Concomitant]
     Dosage: UNK
  11. TYLENOL [Concomitant]
     Dosage: UNK, AS NEEDED

REACTIONS (5)
  - Road traffic accident [Unknown]
  - Red blood cell count decreased [Unknown]
  - Haemoglobin decreased [Unknown]
  - Haematocrit decreased [Unknown]
  - Blood urea nitrogen/creatinine ratio increased [Unknown]
